FAERS Safety Report 6486203-3 (Version None)
Quarter: 2009Q4

REPORT INFORMATION
  Report Type: 
  Country: None (occurrence: None)
  Receive Date: 20091207
  Receipt Date: 20091202
  Transmission Date: 20100525
  Serious: Yes (Hospitalization)
  Sender: FDA-Public Use
  Company Number: SP02675

PATIENT
  Age: 51 Year
  Sex: Male
  Weight: 89.3586 kg

DRUGS (2)
  1. OSMOPREP [Suspect]
     Indication: COLONOSCOPY
     Dosage: ORAL
     Route: 048
     Dates: start: 20091129, end: 20091129
  2. OSMOPREP [Suspect]
     Indication: PREOPERATIVE CARE
     Dosage: ORAL
     Route: 048
     Dates: start: 20091129, end: 20091129

REACTIONS (6)
  - BLOOD POTASSIUM DECREASED [None]
  - BLOOD SODIUM DECREASED [None]
  - CONVULSION [None]
  - FAECAL INCONTINENCE [None]
  - INCOHERENT [None]
  - RHABDOMYOLYSIS [None]
